FAERS Safety Report 6576592-3 (Version None)
Quarter: 2010Q1

REPORT INFORMATION
  Report Type: 
  Country: None (occurrence: None)
  Receive Date: 20100210
  Receipt Date: 20100129
  Transmission Date: 20100710
  Serious: Yes (Hospitalization)
  Sender: FDA-Public Use
  Company Number: PHHY2010HU05902

PATIENT
  Sex: Female

DRUGS (5)
  1. ACLASTA [Suspect]
     Indication: OSTEOPOROSIS
     Dosage: 5 MG, UNK
     Dates: start: 20100115
  2. ALFACALCIDOL [Concomitant]
     Dosage: 0.5 MG PER DAY
  3. FRONTIN [Concomitant]
     Dosage: 0.25 MG, UNK
  4. SERTRALINE HCL [Concomitant]
  5. TENOX [Concomitant]
     Dosage: 5 MG, UNK

REACTIONS (16)
  - ACUTE MYOCARDIAL INFARCTION [None]
  - ASPARTATE AMINOTRANSFERASE INCREASED [None]
  - BACK PAIN [None]
  - BLOOD CREATINE PHOSPHOKINASE INCREASED [None]
  - CHEST PAIN [None]
  - DIARRHOEA [None]
  - DYSPEPSIA [None]
  - FEELING ABNORMAL [None]
  - HYPOCALCAEMIA [None]
  - INFLUENZA LIKE ILLNESS [None]
  - MYOCARDIAL ISCHAEMIA [None]
  - NAUSEA [None]
  - PARAESTHESIA [None]
  - PERIPHERAL COLDNESS [None]
  - SKIN DISCOLOURATION [None]
  - VOMITING [None]
